FAERS Safety Report 15478289 (Version 1)
Quarter: 2018Q4

REPORT INFORMATION
  Report Type: Spontaneous
  Country: US (occurrence: US)
  Receive Date: 20181002
  Receipt Date: 20181002
  Transmission Date: 20190205
  Serious: Yes (Life-Threatening, Other)
  Sender: FDA-Public Use
  Company Number: None

PATIENT
  Age: 28 Year
  Sex: Female
  Weight: 99 kg

DRUGS (1)
  1. BUPRENORPHINE/NALOXO1 NE 8.2 TABLETS [Suspect]
     Active Substance: BUPRENORPHINE\NALOXONE
     Indication: DRUG DEPENDENCE
     Route: 060
     Dates: start: 20180423, end: 20181002

REACTIONS (4)
  - Drug dependence [None]
  - Product solubility abnormal [None]
  - Disease recurrence [None]
  - Vomiting [None]

NARRATIVE: CASE EVENT DATE: 20181002
